FAERS Safety Report 18907539 (Version 3)
Quarter: 2021Q2

REPORT INFORMATION
  Report Type: Report from Study
  Country: None (occurrence: IL)
  Receive Date: 20210217
  Receipt Date: 20210531
  Transmission Date: 20210717
  Serious: Yes (Hospitalization, Disabling)
  Sender: FDA-Public Use
  Company Number: IL-ABBVIE-21K-082-3778366-00

PATIENT
  Sex: Male

DRUGS (4)
  1. DUODOPA [Suspect]
     Active Substance: CARBIDOPA\LEVODOPA
     Indication: PARKINSON^S DISEASE
     Route: 050
     Dates: start: 20190722
  2. LEPONEX [Suspect]
     Active Substance: CLOZAPINE
     Indication: PRODUCT USED FOR UNKNOWN INDICATION
     Route: 065
  3. DUODOPA [Suspect]
     Active Substance: CARBIDOPA\LEVODOPA
     Dosage: CURRENT: MD 8.0 ML, CD DAY 4.5 ML/HOUR, CONTINUOUS NIGHT DOSE 3.0 ML/HOUR, ED 0.5 ML
     Route: 050
  4. DUODOPA [Suspect]
     Active Substance: CARBIDOPA\LEVODOPA
     Dosage: CURRENT: MD 8.0 ML, CD DAY 4.7 ML/HOUR, CONTINUOUS NIGHT DOSE 2.3 ML/HOUR, ED 1.5 ML
     Route: 050

REACTIONS (8)
  - General physical health deterioration [Unknown]
  - Speech disorder [Unknown]
  - Seizure [Recovering/Resolving]
  - Psychomotor hyperactivity [Recovering/Resolving]
  - Loss of personal independence in daily activities [Not Recovered/Not Resolved]
  - Feeding disorder [Unknown]
  - Bedridden [Unknown]
  - Fluid intake reduced [Unknown]
